FAERS Safety Report 25200517 (Version 1)
Quarter: 2025Q2

REPORT INFORMATION
  Report Type: Spontaneous
  Country: DE (occurrence: DE)
  Receive Date: 20250415
  Receipt Date: 20250415
  Transmission Date: 20250717
  Serious: Yes (Life-Threatening, Hospitalization, Other)
  Sender: MYLAN
  Company Number: DE-POHLBOSKAM-AM-2025-00112

PATIENT
  Age: 58 Year
  Sex: Male
  Weight: 70 kg

DRUGS (24)
  1. DOXEPIN [Suspect]
     Active Substance: DOXEPIN
     Indication: Product used for unknown indication
     Dates: start: 20250401, end: 20250401
  2. DOXEPIN [Suspect]
     Active Substance: DOXEPIN
     Route: 065
     Dates: start: 20250401, end: 20250401
  3. DOXEPIN [Suspect]
     Active Substance: DOXEPIN
     Route: 065
     Dates: start: 20250401, end: 20250401
  4. DOXEPIN [Suspect]
     Active Substance: DOXEPIN
     Dates: start: 20250401, end: 20250401
  5. LISINOPRIL [Suspect]
     Active Substance: LISINOPRIL
     Indication: Product used for unknown indication
     Dates: start: 20250401, end: 20250401
  6. LISINOPRIL [Suspect]
     Active Substance: LISINOPRIL
     Route: 065
     Dates: start: 20250401, end: 20250401
  7. LISINOPRIL [Suspect]
     Active Substance: LISINOPRIL
     Route: 065
     Dates: start: 20250401, end: 20250401
  8. LISINOPRIL [Suspect]
     Active Substance: LISINOPRIL
     Dates: start: 20250401, end: 20250401
  9. BISOPROLOL [Suspect]
     Active Substance: BISOPROLOL
     Indication: Product used for unknown indication
     Dates: start: 20250401, end: 20250401
  10. BISOPROLOL [Suspect]
     Active Substance: BISOPROLOL
     Route: 065
     Dates: start: 20250401, end: 20250401
  11. BISOPROLOL [Suspect]
     Active Substance: BISOPROLOL
     Route: 065
     Dates: start: 20250401, end: 20250401
  12. BISOPROLOL [Suspect]
     Active Substance: BISOPROLOL
     Dates: start: 20250401, end: 20250401
  13. METFORMIN [Suspect]
     Active Substance: METFORMIN HYDROCHLORIDE
     Indication: Product used for unknown indication
     Dates: start: 20250401, end: 20250401
  14. METFORMIN [Suspect]
     Active Substance: METFORMIN HYDROCHLORIDE
     Route: 065
     Dates: start: 20250401, end: 20250401
  15. METFORMIN [Suspect]
     Active Substance: METFORMIN HYDROCHLORIDE
     Route: 065
     Dates: start: 20250401, end: 20250401
  16. METFORMIN [Suspect]
     Active Substance: METFORMIN HYDROCHLORIDE
     Dates: start: 20250401, end: 20250401
  17. NITROLINGUAL [Suspect]
     Active Substance: NITROGLYCERIN
     Indication: Product used for unknown indication
     Dates: start: 20250401, end: 20250401
  18. NITROLINGUAL [Suspect]
     Active Substance: NITROGLYCERIN
     Route: 060
     Dates: start: 20250401, end: 20250401
  19. NITROLINGUAL [Suspect]
     Active Substance: NITROGLYCERIN
     Route: 060
     Dates: start: 20250401, end: 20250401
  20. NITROLINGUAL [Suspect]
     Active Substance: NITROGLYCERIN
     Dates: start: 20250401, end: 20250401
  21. ATORVASTATIN [Suspect]
     Active Substance: ATORVASTATIN
     Indication: Product used for unknown indication
     Dates: start: 20250401, end: 20250401
  22. ATORVASTATIN [Suspect]
     Active Substance: ATORVASTATIN
     Route: 065
     Dates: start: 20250401, end: 20250401
  23. ATORVASTATIN [Suspect]
     Active Substance: ATORVASTATIN
     Route: 065
     Dates: start: 20250401, end: 20250401
  24. ATORVASTATIN [Suspect]
     Active Substance: ATORVASTATIN
     Dates: start: 20250401, end: 20250401

REACTIONS (5)
  - Intentional product misuse [Recovered/Resolved]
  - Bradycardia [Recovered/Resolved]
  - Hypotension [Recovered/Resolved]
  - Respiratory failure [Recovered/Resolved]
  - Suicidal ideation [Unknown]

NARRATIVE: CASE EVENT DATE: 20250401
